FAERS Safety Report 21650928 (Version 9)
Quarter: 2023Q1

REPORT INFORMATION
  Report Type: Spontaneous
  Country: CA (occurrence: CA)
  Receive Date: 20221128
  Receipt Date: 20230215
  Transmission Date: 20230418
  Serious: Yes (Other)
  Sender: FDA-Public Use
  Company Number: CA-PFIZER INC-PV202200025918

PATIENT
  Age: 33 Year
  Sex: Female
  Weight: 71 kg

DRUGS (9)
  1. ZIRABEV [Suspect]
     Active Substance: BEVACIZUMAB-BVZR
     Indication: Malignant glioma
     Dosage: 710 MG,  EVERY 2 WEEKS (10MG/KG)
     Route: 042
  2. ZIRABEV [Suspect]
     Active Substance: BEVACIZUMAB-BVZR
     Indication: Glioma
     Dosage: 10 MG/KG,(710 MG), Q 2 WEEKS X 6 REPEATS
     Route: 042
     Dates: start: 20220729
  3. ZIRABEV [Suspect]
     Active Substance: BEVACIZUMAB-BVZR
     Dosage: 780 MG, Q 2 WEEKS
     Route: 042
     Dates: start: 20220729
  4. ZIRABEV [Suspect]
     Active Substance: BEVACIZUMAB-BVZR
     Dosage: 710 MG
     Route: 042
     Dates: start: 20221103
  5. ZIRABEV [Suspect]
     Active Substance: BEVACIZUMAB-BVZR
     Dosage: 710 MG
     Route: 042
     Dates: start: 20221117
  6. ZIRABEV [Suspect]
     Active Substance: BEVACIZUMAB-BVZR
     Dosage: 780 MG
     Route: 042
  7. ZIRABEV [Suspect]
     Active Substance: BEVACIZUMAB-BVZR
     Dosage: 780 MG, Q 2 WEEKS
     Route: 042
     Dates: start: 20221223
  8. ZIRABEV [Suspect]
     Active Substance: BEVACIZUMAB-BVZR
     Dosage: 780 MG, Q 2 WEEKS
     Route: 042
     Dates: start: 20230120
  9. AMOXICILLIN [Concomitant]
     Active Substance: AMOXICILLIN
     Dosage: UNK
     Route: 065

REACTIONS (13)
  - Hemiparesis [Unknown]
  - Therapy non-responder [Unknown]
  - Weight increased [Unknown]
  - Blood pressure increased [Unknown]
  - Fatigue [Unknown]
  - Depressed mood [Unknown]
  - Mental fatigue [Unknown]
  - Loss of personal independence in daily activities [Unknown]
  - Emotional disorder [Unknown]
  - Anxiety [Unknown]
  - Illness [Unknown]
  - Somnolence [Not Recovered/Not Resolved]
  - Off label use [Unknown]

NARRATIVE: CASE EVENT DATE: 20220101
